FAERS Safety Report 5470825-2 (Version None)
Quarter: 2007Q3

REPORT INFORMATION
  Report Type: 
  Country: None (occurrence: None)
  Receive Date: 20070925
  Receipt Date: 20070905
  Transmission Date: 20080115
  Serious: Yes (Other)
  Sender: FDA-Public Use
  Company Number: 6038139

PATIENT
  Age: 77 Year
  Sex: Male

DRUGS (7)
  1. ENALAPRIL MALEATE [Suspect]
     Indication: HYPERTENSION
     Dosage: (10 MG) ORAL
     Route: 048
  2. TAMSULOSIN HCL [Suspect]
     Indication: DRUG USE FOR UNKNOWN INDICATION
     Dosage: (400 MG) ORAL
     Route: 048
  3. SIMVASTATIN [Suspect]
     Indication: HYPERCHOLESTEROLAEMIA
     Dosage: (20 MG) ORAL
     Route: 048
  4. PLAVIX [Suspect]
     Indication: ANTICOAGULANT THERAPY
     Dosage: (75 MG) ORAL
     Route: 048
  5. FINASTERIDE [Concomitant]
  6. MAXITROL (DEXAMETHASONE, NEOMYCIN SULFATE, POLYMYXIN B SULFATE) [Concomitant]
  7. ACETAMINOPHEN [Concomitant]

REACTIONS (1)
  - HALLUCINATION [None]
